FAERS Safety Report 9013036 (Version 1)
Quarter: 2013Q1

REPORT INFORMATION
  Report Type: Spontaneous
  Country: US (occurrence: US)
  Receive Date: 20130114
  Receipt Date: 20130114
  Transmission Date: 20140127
  Serious: No
  Sender: FDA-Public Use
  Company Number: US-PFIZER INC-2013013408

PATIENT
  Sex: Female

DRUGS (1)
  1. ADVIL [Suspect]
     Indication: BACK PAIN
     Dosage: 200 MG, AS NEEDED
     Route: 048
     Dates: start: 20130109

REACTIONS (3)
  - Pruritus [Not Recovered/Not Resolved]
  - Skin irritation [Not Recovered/Not Resolved]
  - Paraesthesia [Not Recovered/Not Resolved]
